FAERS Safety Report 17281541 (Version 1)
Quarter: 2020Q1

REPORT INFORMATION
  Report Type: Spontaneous
  Country: US (occurrence: US)
  Receive Date: 20191227
  Receipt Date: 20191227
  Transmission Date: 20200409
  Serious: Yes (Hospitalization)
  Sender: FDA-Public Use
  Company Number: None

PATIENT
  Age: 52 Year
  Sex: Male
  Weight: 118 kg

DRUGS (1)
  1. BENAZEPRIL (BENAZEPRIL HCL 20MG, TAB, UD) [Suspect]
     Active Substance: BENAZEPRIL HYDROCHLORIDE
     Indication: HYPERTENSION
     Dates: start: 20060401, end: 20110414

REACTIONS (1)
  - Angioedema [None]

NARRATIVE: CASE EVENT DATE: 20110414
